FAERS Safety Report 9931027 (Version 4)
Quarter: 2015Q1

REPORT INFORMATION
  Report Type: Report from Study
  Country: RU (occurrence: RU)
  Receive Date: 20140227
  Receipt Date: 20150203
  Transmission Date: 20150721
  Serious: Yes (Hospitalization)
  Sender: FDA-Public Use
  Company Number: PHHO2014RU002916

PATIENT
  Age: 8 Year
  Sex: Female
  Weight: 35.8 kg

DRUGS (7)
  1. ACZ885 [Suspect]
     Active Substance: CANAKINUMAB
     Indication: JUVENILE IDIOPATHIC ARTHRITIS
     Dosage: 4 MG/KG, MONTHLY
     Route: 058
     Dates: start: 20121017
  2. ACICLOVIR [Suspect]
     Active Substance: ACYCLOVIR
     Dosage: 200 MG, 5 TIMES A DAY
     Route: 048
     Dates: start: 20140103, end: 20140105
  3. ACICLOVIR [Suspect]
     Active Substance: ACYCLOVIR
     Indication: PRODUCT USED FOR UNKNOWN INDICATION
     Dosage: 100 MG, 5 TIMES A DAY
     Route: 065
     Dates: start: 20130101
  4. ACICLOVIR [Suspect]
     Active Substance: ACYCLOVIR
     Dosage: 100 MG, 4 TIMES A DAY
     Route: 065
     Dates: start: 20140101, end: 20140102
  5. AUGMENTINE [Suspect]
     Active Substance: AMOXICILLIN\CLAVULANATE POTASSIUM
     Indication: PRODUCT USED FOR UNKNOWN INDICATION
     Dosage: 250 MG, TID
     Route: 048
     Dates: start: 20131231, end: 20140104
  6. VOLTAREN [Suspect]
     Active Substance: DICLOFENAC SODIUM
     Indication: PRODUCT USED FOR UNKNOWN INDICATION
     Dosage: 25 MG, 1-2 TIMES A DAY
     Route: 054
     Dates: start: 20131231
  7. ACZ885 [Suspect]
     Active Substance: CANAKINUMAB
     Dosage: 2 MG/KG, MONTHLY
     Route: 058
     Dates: start: 20140304

REACTIONS (3)
  - Juvenile idiopathic arthritis [Recovered/Resolved with Sequelae]
  - Varicella [Recovering/Resolving]
  - Hepatitis toxic [Recovered/Resolved with Sequelae]

NARRATIVE: CASE EVENT DATE: 20131231
